FAERS Safety Report 9513935 (Version 1)
Quarter: 2013Q3

REPORT INFORMATION
  Report Type: Spontaneous
  Country: AT (occurrence: AT)
  Receive Date: 20130910
  Receipt Date: 20130910
  Transmission Date: 20140515
  Serious: Yes (Life-Threatening, Other)
  Sender: FDA-Public Use
  Company Number: AT-ROXANE LABORATORIES, INC.-2013-RO-01493RO

PATIENT
  Age: 2 Year
  Sex: Male

DRUGS (1)
  1. LIDOCAINE [Suspect]
     Route: 048

REACTIONS (3)
  - Cardiac arrest [Recovered/Resolved]
  - Status epilepticus [Recovered/Resolved]
  - Posterior reversible encephalopathy syndrome [Recovered/Resolved]
